FAERS Safety Report 8532577-9 (Version None)
Quarter: 2012Q3

REPORT INFORMATION
  Report Type: 
  Country: None (occurrence: None)
  Receive Date: 20120724
  Receipt Date: 20120718
  Transmission Date: 20120928
  Serious: Yes (Other)
  Sender: FDA-Public Use
  Company Number: US-PFIZER INC-2012174431

PATIENT
  Sex: Male

DRUGS (1)
  1. INLYTA [Suspect]
     Indication: RENAL NEOPLASM
     Dosage: 5 MG, 2X/DAY
     Dates: start: 20120703

REACTIONS (1)
  - TRANSIENT ISCHAEMIC ATTACK [None]
